FAERS Safety Report 8570179-9 (Version None)
Quarter: 2012Q3

REPORT INFORMATION
  Report Type: 
  Country: None (occurrence: None)
  Receive Date: 20120803
  Receipt Date: 20120724
  Transmission Date: 20120928
  Serious: No
  Sender: FDA-Public Use
  Company Number: US-PFIZER INC-2012171049

PATIENT

DRUGS (1)
  1. ZOLOFT [Suspect]
     Dosage: 100 MG, DAILY

REACTIONS (1)
  - NO ADVERSE EVENT [None]
